FAERS Safety Report 19663645 (Version 1)
Quarter: 2021Q3

REPORT INFORMATION
  Report Type: Report from Study
  Country: NL (occurrence: NL)
  Receive Date: 20210805
  Receipt Date: 20210805
  Transmission Date: 20211014
  Serious: Yes (Death)
  Sender: FDA-Public Use
  Company Number: NL-VER-202100123

PATIENT
  Age: 87 Year
  Sex: Male

DRUGS (1)
  1. TRIPTORELIN PAMOATE [Suspect]
     Active Substance: TRIPTORELIN PAMOATE
     Indication: PRODUCT USED FOR UNKNOWN INDICATION
     Dosage: (SOLVENT 2ML)
     Route: 030
     Dates: start: 20210225

REACTIONS (1)
  - Death [Fatal]

NARRATIVE: CASE EVENT DATE: 20210511
